FAERS Safety Report 12949390 (Version 1)
Quarter: 2016Q4

REPORT INFORMATION
  Report Type: Spontaneous
  Country: US (occurrence: US)
  Receive Date: 20161116
  Receipt Date: 20161116
  Transmission Date: 20170207
  Serious: Yes (Life-Threatening, Disabling)
  Sender: FDA-Public Use
  Company Number: None

PATIENT
  Age: 40 Year
  Sex: Female
  Weight: 61 kg

DRUGS (6)
  1. VORTIOXETIN [Suspect]
     Active Substance: VORTIOXETINE
     Indication: DEPRESSION
     Dosage: QUANTITY:1 TABLET(S); ORAL; ?
     Route: 048
     Dates: start: 20161101, end: 20161116
  2. VORTIOXETIN [Suspect]
     Active Substance: VORTIOXETINE
     Indication: ANXIETY
     Dosage: QUANTITY:1 TABLET(S); ORAL; ?
     Route: 048
     Dates: start: 20161101, end: 20161116
  3. ALPRAZOLAM. [Concomitant]
     Active Substance: ALPRAZOLAM
  4. VORTIOXETIN [Suspect]
     Active Substance: VORTIOXETINE
     Indication: POST-TRAUMATIC STRESS DISORDER
     Dosage: QUANTITY:1 TABLET(S); ORAL; ?
     Route: 048
     Dates: start: 20161101, end: 20161116
  5. VORTIOXETIN [Suspect]
     Active Substance: VORTIOXETINE
     Indication: ATTENTION DEFICIT/HYPERACTIVITY DISORDER
     Dosage: QUANTITY:1 TABLET(S); ORAL; ?
     Route: 048
     Dates: start: 20161101, end: 20161116
  6. GABAPENTIN. [Concomitant]
     Active Substance: GABAPENTIN

REACTIONS (7)
  - Suicidal behaviour [None]
  - Social fear [None]
  - Peripheral coldness [None]
  - Sexual dysfunction [None]
  - Nightmare [None]
  - Anxiety [None]
  - Asthma [None]

NARRATIVE: CASE EVENT DATE: 20161101
